FAERS Safety Report 9580722 (Version 2)
Quarter: 2013Q4

REPORT INFORMATION
  Report Type: Spontaneous
  Country: JP (occurrence: JP)
  Receive Date: 20131002
  Receipt Date: 20131002
  Transmission Date: 20140711
  Serious: Yes (Hospitalization)
  Sender: FDA-Public Use
  Company Number: JP-SANOFI-AVENTIS-2013SA089953

PATIENT
  Age: 70 Year
  Sex: Female

DRUGS (2)
  1. PLAVIX [Suspect]
     Indication: CEREBRAL INFARCTION
     Route: 048
     Dates: start: 201308
  2. BAYASPIRIN [Concomitant]
     Route: 048

REACTIONS (2)
  - Obstruction [Unknown]
  - Drug ineffective [Unknown]
